FAERS Safety Report 14460470 (Version 1)
Quarter: 2018Q1

REPORT INFORMATION
  Report Type: Spontaneous
  Country: US (occurrence: US)
  Receive Date: 20180130
  Receipt Date: 20180130
  Transmission Date: 20180509
  Serious: Yes (Other)
  Sender: FDA-Public Use
  Company Number: None

PATIENT
  Age: 35 Year
  Sex: Female
  Weight: 54 kg

DRUGS (4)
  1. CHLORAPREP [Suspect]
     Active Substance: CHLORHEXIDINE GLUCONATE\ISOPROPYL ALCOHOL
     Indication: THERAPEUTIC SKIN CARE TOPICAL
     Route: 061
     Dates: start: 20180103, end: 20180103
  2. MOTRIN [Concomitant]
     Active Substance: IBUPROFEN
  3. TYLENOL [Concomitant]
     Active Substance: ACETAMINOPHEN
  4. BENEDRYLL [Concomitant]

REACTIONS (12)
  - Skin reaction [None]
  - Burning sensation [None]
  - Chemical burn [None]
  - Feeling hot [None]
  - Skin discolouration [None]
  - Application site rash [None]
  - Dyspnoea [None]
  - Application site erythema [None]
  - Urticaria [None]
  - Application site reaction [None]
  - Pyrexia [None]
  - Rash macular [None]

NARRATIVE: CASE EVENT DATE: 20180108
